FAERS Safety Report 23941420 (Version 1)
Quarter: 2024Q2

REPORT INFORMATION
  Report Type: Spontaneous
  Country: DE (occurrence: DE)
  Receive Date: 20240605
  Receipt Date: 20240605
  Transmission Date: 20240715
  Serious: Yes (Death, Other)
  Sender: FDA-Public Use
  Company Number: None

PATIENT
  Sex: Male

DRUGS (2)
  1. MONTELUKAST [Suspect]
     Active Substance: MONTELUKAST SODIUM
     Indication: Asthma
     Route: 048
     Dates: start: 202311
  2. CORTISONE [Concomitant]
     Active Substance: CORTISONE
     Indication: Asthma
     Dosage: UNKNOWN
     Route: 065

REACTIONS (6)
  - Illusion [Unknown]
  - Neuropsychological symptoms [Unknown]
  - Completed suicide [Fatal]
  - Coma [Fatal]
  - Delusion [Unknown]
  - Thinking abnormal [Unknown]

NARRATIVE: CASE EVENT DATE: 20240116
